FAERS Safety Report 6347052-X (Version None)
Quarter: 2009Q3

REPORT INFORMATION
  Report Type: 
  Country: None (occurrence: None)
  Receive Date: 20090909
  Receipt Date: 20090909
  Transmission Date: 20100115
  Serious: Yes (Other)
  Sender: FDA-Public Use
  Company Number: None

PATIENT
  Age: 46 Year
  Sex: Female
  Weight: 58.9676 kg

DRUGS (1)
  1. MUPIROCIN [Suspect]
     Indication: ANAL ABSCESS
     Dosage: DAB OF OINTMENT 2-3X/DAY CUTANEOUS
     Route: 003
     Dates: start: 20090902, end: 20090905

REACTIONS (4)
  - ABDOMINAL PAIN [None]
  - DIARRHOEA [None]
  - DIZZINESS [None]
  - NAUSEA [None]
